FAERS Safety Report 16311388 (Version 1)
Quarter: 2019Q2

REPORT INFORMATION
  Report Type: Spontaneous
  Country: US (occurrence: US)
  Receive Date: 20190514
  Receipt Date: 20190514
  Transmission Date: 20190711
  Serious: Yes (Other)
  Sender: FDA-Public Use
  Company Number: US-TEVA-2019-US-1048670

PATIENT
  Sex: Female

DRUGS (2)
  1. HYDROXYUREA CAPSULE [Suspect]
     Active Substance: HYDROXYUREA
     Indication: BREAST CANCER
     Dosage: FIVE DAYS A WEEK AT AN UNSPECIFIED TIME AND THEN TO SIX DAYS A WEEK
     Route: 065
     Dates: start: 201808, end: 20190425
  2. HYDROXYUREA CAPSULE [Suspect]
     Active Substance: HYDROXYUREA
     Indication: WHITE BLOOD CELL COUNT INCREASED

REACTIONS (4)
  - Pollakiuria [Recovered/Resolved]
  - Rectal haemorrhage [Recovered/Resolved]
  - Haemorrhoids [Recovered/Resolved]
  - Diarrhoea [Recovered/Resolved]

NARRATIVE: CASE EVENT DATE: 201808
